FAERS Safety Report 8791791 (Version 1)
Quarter: 2012Q4

REPORT INFORMATION
  Report Type: 
  Country: US (occurrence: US)
  Receive Date: 20120918
  Receipt Date: 20120918
  Transmission Date: 20130627
  Serious: Yes (Hospitalization, Other)
  Sender: FDA-Public Use
  Company Number: US-SANOFI-AVENTIS-2012SA065624

PATIENT
  Sex: Male

DRUGS (2)
  1. LANTUS [Suspect]
     Indication: TYPE II DIABETES MELLITUS
     Dosage: Dose:40 unit(s)
     Route: 058
  2. NOVOLOG [Suspect]
     Indication: TYPE II DIABETES MELLITUS
     Dosage: Dose:6 unit(s)
     Route: 065

REACTIONS (2)
  - Cardiac operation [Recovered/Resolved]
  - Cardiac valve disease [Unknown]
